FAERS Safety Report 24207239 (Version 5)
Quarter: 2025Q1

REPORT INFORMATION
  Report Type: Spontaneous
  Country: US (occurrence: US)
  Receive Date: 20240813
  Receipt Date: 20250328
  Transmission Date: 20250409
  Serious: No
  Sender: SANOFI AVENTIS
  Company Number: US-SA-SAC20240812000440

PATIENT
  Age: 71 Year
  Sex: Male
  Weight: 83.9 kg

DRUGS (8)
  1. DUPIXENT [Suspect]
     Active Substance: DUPILUMAB
     Indication: Dermatitis atopic
     Dosage: 300 MG, QOW
     Route: 058
     Dates: start: 202408
  2. DUPIXENT [Suspect]
     Active Substance: DUPILUMAB
     Dosage: 300 MG, QOW
     Route: 058
  3. OFEV [Concomitant]
     Active Substance: NINTEDANIB
  4. TADALAFIL [Concomitant]
     Active Substance: TADALAFIL
  5. OTEZLA [Concomitant]
     Active Substance: APREMILAST
  6. UPTRAVI [Concomitant]
     Active Substance: SELEXIPAG
     Dates: start: 20230522
  7. UPTRAVI [Concomitant]
     Active Substance: SELEXIPAG
     Dosage: 2400MCG (ONE 1600MCG + ONE 800MCG) TWICE DAILY
  8. OPSUMIT [Concomitant]
     Active Substance: MACITENTAN

REACTIONS (8)
  - Sleep talking [Unknown]
  - Fluid retention [Unknown]
  - Weight increased [Recovering/Resolving]
  - Joint swelling [Unknown]
  - Peripheral swelling [Unknown]
  - Arthritis [Unknown]
  - Swelling of eyelid [Unknown]
  - Eye swelling [Recovered/Resolved]

NARRATIVE: CASE EVENT DATE: 20240101
